FAERS Safety Report 4744759-2 (Version None)
Quarter: 2005Q3

REPORT INFORMATION
  Report Type: 
  Country: None (occurrence: None)
  Receive Date: 20050815
  Receipt Date: 20050329
  Transmission Date: 20060218
  Serious: Yes (Other)
  Sender: FDA-Public Use
  Company Number: 200510954JP

PATIENT
  Age: 75 Year
  Sex: Male
  Weight: 55 kg

DRUGS (3)
  1. TAXOTERE [Suspect]
     Indication: LIP AND/OR ORAL CAVITY CANCER
     Route: 041
     Dates: start: 20050227, end: 20050227
  2. CISPLATIN [Concomitant]
     Indication: LIP AND/OR ORAL CAVITY CANCER
     Dates: start: 20041130, end: 20050203
  3. RADIATION THERAPY [Concomitant]
     Dates: start: 20041202, end: 20050131

REACTIONS (10)
  - BACTERIAL TEST POSITIVE [None]
  - BLOOD CULTURE POSITIVE [None]
  - C-REACTIVE PROTEIN INCREASED [None]
  - CANDIDA SEROLOGY POSITIVE [None]
  - CHILLS [None]
  - DISSEMINATED INTRAVASCULAR COAGULATION [None]
  - GRANULOCYTE COUNT DECREASED [None]
  - INFECTION [None]
  - PLATELET COUNT DECREASED [None]
  - PYREXIA [None]
